FAERS Safety Report 10168231 (Version 1)
Quarter: 2014Q2

REPORT INFORMATION
  Report Type: Spontaneous
  Country: ES (occurrence: ES)
  Receive Date: 20140512
  Receipt Date: 20140512
  Transmission Date: 20141212
  Serious: Yes (Hospitalization)
  Sender: FDA-Public Use
  Company Number: PHHY2014ES055837

PATIENT
  Age: 2 Year
  Sex: Male

DRUGS (1)
  1. ISONIAZID [Suspect]
     Indication: TUBERCULOSIS
     Route: 048

REACTIONS (10)
  - Trismus [Recovered/Resolved]
  - Liver disorder [Recovered/Resolved]
  - Hypertonia [Recovered/Resolved]
  - Agitation [Recovered/Resolved]
  - Hyperglycaemia [Recovered/Resolved]
  - Delusion [Recovered/Resolved]
  - Generalised tonic-clonic seizure [Recovered/Resolved]
  - Metabolic acidosis [Recovered/Resolved]
  - Toxicity to various agents [Recovered/Resolved]
  - Accidental overdose [Recovered/Resolved]
